FAERS Safety Report 5448133-5 (Version None)
Quarter: 2007Q3

REPORT INFORMATION
  Report Type: 
  Country: None (occurrence: None)
  Receive Date: 20070803
  Receipt Date: 20070614
  Transmission Date: 20080115
  Serious: No
  Sender: FDA-Public Use
  Company Number: 200711782BWH

PATIENT
  Age: 75 Year
  Sex: Male

DRUGS (1)
  1. NEXAVAR [Suspect]
     Indication: RENAL CELL CARCINOMA STAGE UNSPECIFIED
     Dosage: 400 MG, BID, ORAL; 400 MG, QD, ORAL
     Route: 048
     Dates: start: 20070426

REACTIONS (4)
  - CONSTIPATION [None]
  - DIARRHOEA [None]
  - FLATULENCE [None]
  - RASH [None]
